FAERS Safety Report 8227505-X (Version None)
Quarter: 2012Q1

REPORT INFORMATION
  Report Type: 
  Country: None (occurrence: None)
  Receive Date: 20120322
  Receipt Date: 20120314
  Transmission Date: 20120608
  Serious: Yes (Other)
  Sender: FDA-Public Use
  Company Number: PHEH2012US003815

PATIENT
  Sex: Female
  Weight: 70.748 kg

DRUGS (12)
  1. BACLOFEN [Concomitant]
     Dosage: 1 DF, TID
     Route: 048
  2. CALCIUM CARBONATE W/VITAMIN D NOS [Concomitant]
  3. GILENYA [Suspect]
     Indication: RELAPSING-REMITTING MULTIPLE SCLEROSIS
     Dosage: 0.5 MG, QD
     Route: 048
     Dates: start: 20120124
  4. FAMPRIDINE [Concomitant]
     Dosage: 10 MG, TID
  5. LASIX [Concomitant]
  6. PROVENTIL-HFA [Concomitant]
  7. MIRAPEX [Concomitant]
     Dosage: 1 DF, QHS
     Route: 048
  8. CYMBALTA [Concomitant]
     Dosage: 1 DF, BID
     Route: 048
  9. PROVIGIL [Concomitant]
     Dosage: 1 DF, QD
     Route: 048
  10. VICODIN [Concomitant]
  11. NEURONTIN [Concomitant]
     Dosage: 1 DF, TID
     Route: 048
  12. VALIUM [Concomitant]
     Indication: MUSCLE SPASMS
     Dosage: 1 DF, QHS
     Route: 048

REACTIONS (24)
  - DYSPNOEA [None]
  - IRON DEFICIENCY [None]
  - CYSTITIS NONINFECTIVE [None]
  - PATELLOFEMORAL PAIN SYNDROME [None]
  - NAUSEA [None]
  - PAIN IN EXTREMITY [None]
  - URETHRAL STENOSIS [None]
  - URINARY RETENTION [None]
  - BACK PAIN [None]
  - OSTEOARTHRITIS [None]
  - ARTHRALGIA [None]
  - HYPERKERATOSIS [None]
  - RESTLESS LEGS SYNDROME [None]
  - COUGH [None]
  - TENDONITIS [None]
  - FIBROMYALGIA [None]
  - CHRONIC OBSTRUCTIVE PULMONARY DISEASE [None]
  - MENISCUS LESION [None]
  - FATIGUE [None]
  - ACQUIRED CLAW TOE [None]
  - INSOMNIA [None]
  - HEART RATE INCREASED [None]
  - MYCOBACTERIUM AVIUM COMPLEX INFECTION [None]
  - FASCIITIS [None]
